FAERS Safety Report 8073031-0 (Version None)
Quarter: 2012Q1

REPORT INFORMATION
  Report Type: 
  Country: None (occurrence: None)
  Receive Date: 20120126
  Receipt Date: 20120117
  Transmission Date: 20120608
  Serious: Yes (Death)
  Sender: FDA-Public Use
  Company Number: FR-BRISTOL-MYERS SQUIBB COMPANY-16354631

PATIENT
  Sex: Male

DRUGS (2)
  1. ARIXTRA [Concomitant]
  2. SPRYCEL [Suspect]
     Indication: MYELOPROLIFERATIVE DISORDER
     Dates: start: 20110501, end: 20110901

REACTIONS (2)
  - CAPILLARY LEAK SYNDROME [None]
  - DIARRHOEA [None]
